FAERS Safety Report 9849540 (Version 1)
Quarter: 2014Q1

REPORT INFORMATION
  Report Type: Report from Study
  Country: US (occurrence: US)
  Receive Date: 20140128
  Receipt Date: 20140128
  Transmission Date: 20141002
  Serious: Yes (Hospitalization, Other)
  Sender: FDA-Public Use
  Company Number: US-PURDUE-USA-2014-0110651

PATIENT
  Age: 56 Year
  Sex: Female

DRUGS (3)
  1. OXY CR TAB [Suspect]
     Indication: PAIN
     Dosage: 40 MG, Q12H
     Route: 048
     Dates: start: 20131226
  2. OXY CR TAB [Suspect]
     Indication: FIBROMYALGIA
  3. OXY CR TAB [Suspect]
     Indication: SCIATICA

REACTIONS (2)
  - Cellulitis [Unknown]
  - Heart rate irregular [Unknown]
